FAERS Safety Report 13195827 (Version 3)
Quarter: 2017Q1

REPORT INFORMATION
  Report Type: Report from Study
  Country: BR (occurrence: BR)
  Receive Date: 20170208
  Receipt Date: 20170228
  Transmission Date: 20170428
  Serious: Yes (Hospitalization, Disabling, Other)
  Sender: FDA-Public Use
  Company Number: PHHY2017BR013781

PATIENT
  Age: 58 Year
  Sex: Female
  Weight: 64 kg

DRUGS (13)
  1. INSULIN, REGULAR [Concomitant]
     Active Substance: INSULIN NOS
     Indication: PRODUCT USED FOR UNKNOWN INDICATION
     Dosage: UNK
     Route: 065
  2. CITALOPRAM [Concomitant]
     Active Substance: CITALOPRAM HYDROBROMIDE
     Indication: DEPRESSION
     Dosage: 3 DF, UNK
     Route: 048
  3. GALANTAMINE. [Concomitant]
     Active Substance: GALANTAMINE
     Indication: CEREBRAL ATROPHY
     Dosage: 24 MG, QD (1 TABLET A DAY)
     Route: 048
     Dates: start: 2004
  4. MANTIDAN [Concomitant]
     Active Substance: AMANTADINE HYDROCHLORIDE
     Indication: FATIGUE
     Dosage: 2 DF, QD
     Route: 048
  5. MECLIN [Concomitant]
     Indication: DIZZINESS
     Dosage: UNK
     Route: 065
  6. GILENYA [Suspect]
     Active Substance: FINGOLIMOD HYDROCHLORIDE
     Indication: MULTIPLE SCLEROSIS
     Dosage: 0.5 MG, QD
     Route: 048
     Dates: start: 20150214
  7. BENICAR [Concomitant]
     Active Substance: OLMESARTAN MEDOXOMIL
     Indication: TACHYCARDIA
     Dosage: 1 DF, QD
     Route: 048
  8. LIVALO [Concomitant]
     Active Substance: PITAVASTATIN CALCIUM
     Indication: BLOOD CHOLESTEROL ABNORMAL
     Dosage: 1 DF, QD
     Route: 048
  9. VONAU [Concomitant]
     Active Substance: ONDANSETRON HYDROCHLORIDE
     Indication: NAUSEA
  10. PRIMIDONE. [Concomitant]
     Active Substance: PRIMIDONE
     Indication: TREMOR
     Dosage: 1 DF, QD
     Route: 048
  11. NPH INSULIN [Concomitant]
     Active Substance: INSULIN BEEF
     Indication: PRODUCT USED FOR UNKNOWN INDICATION
     Dosage: UNK
     Route: 065
  12. RIVOTRIL [Concomitant]
     Active Substance: CLONAZEPAM
     Indication: TREMOR
     Dosage: 1 DF, QD
     Route: 048
  13. VONAU [Concomitant]
     Active Substance: ONDANSETRON HYDROCHLORIDE
     Indication: VOMITING
     Dosage: UNK
     Route: 065

REACTIONS (24)
  - Diplopia [Not Recovered/Not Resolved]
  - Leukocytosis [Unknown]
  - Treatment failure [Unknown]
  - Visual impairment [Not Recovered/Not Resolved]
  - Blindness unilateral [Not Recovered/Not Resolved]
  - Central nervous system lesion [Unknown]
  - Spinal pain [Not Recovered/Not Resolved]
  - Oxygen saturation decreased [Unknown]
  - Retinal neovascularisation [Not Recovered/Not Resolved]
  - Eye pain [Unknown]
  - Body height decreased [Unknown]
  - Hydrocephalus [Not Recovered/Not Resolved]
  - Weight decreased [Unknown]
  - Memory impairment [Unknown]
  - C-reactive protein increased [Unknown]
  - Retinal haemorrhage [Not Recovered/Not Resolved]
  - Blindness [Not Recovered/Not Resolved]
  - Demyelination [Not Recovered/Not Resolved]
  - Vision blurred [Unknown]
  - Optic neuritis [Unknown]
  - Photophobia [Unknown]
  - Spinal disorder [Unknown]
  - Tremor [Unknown]
  - Optic nerve disorder [Not Recovered/Not Resolved]

NARRATIVE: CASE EVENT DATE: 201601
